FAERS Safety Report 23605175 (Version 1)
Quarter: 2024Q1

REPORT INFORMATION
  Report Type: Spontaneous
  Country: US (occurrence: US)
  Receive Date: 20240307
  Receipt Date: 20240307
  Transmission Date: 20240410
  Serious: Yes (Other)
  Sender: FDA-Public Use
  Company Number: US-PFIZER INC-PV202400029579

PATIENT
  Age: 62 Year
  Sex: Male

DRUGS (1)
  1. CYTARABINE [Suspect]
     Active Substance: CYTARABINE
     Indication: Acute myeloid leukaemia
     Dosage: HIGH DOSE

REACTIONS (5)
  - Encephalopathy [Recovered/Resolved]
  - Headache [Recovered/Resolved]
  - Photophobia [Recovered/Resolved]
  - CSF lymphocyte count abnormal [Recovered/Resolved]
  - Magnetic resonance imaging head abnormal [Recovered/Resolved]
